FAERS Safety Report 20771304 (Version 1)
Quarter: 2022Q2

REPORT INFORMATION
  Report Type: Spontaneous
  Country: GB (occurrence: GB)
  Receive Date: 20220429
  Receipt Date: 20220429
  Transmission Date: 20220721
  Serious: Yes (Other)
  Sender: FDA-Public Use
  Company Number: GB-Osmotica_Pharmaceutical_US_LLC-POI0573202200059

PATIENT
  Age: 50 Year
  Sex: Female
  Weight: 58 kg

DRUGS (1)
  1. DIVIGEL [Suspect]
     Active Substance: ESTRADIOL
     Indication: Menopause
     Dates: start: 20220228, end: 20220413

REACTIONS (1)
  - Depression [Not Recovered/Not Resolved]

NARRATIVE: CASE EVENT DATE: 20220315
